FAERS Safety Report 5046454-1 (Version None)
Quarter: 2006Q3

REPORT INFORMATION
  Report Type: 
  Country: None (occurrence: None)
  Receive Date: 20060710
  Receipt Date: 20060627
  Transmission Date: 20061208
  Serious: Yes (Hospitalization)
  Sender: FDA-Public Use
  Company Number: ES-GLAXOSMITHKLINE-B0429646A

PATIENT
  Age: 7 Year
  Sex: Female

DRUGS (2)
  1. AMOXICILLIN-CLAVULANIC ACID [Suspect]
     Route: 065
  2. PARACETAMOL [Concomitant]
     Route: 065

REACTIONS (9)
  - ENANTHEMA [None]
  - EPSTEIN-BARR VIRUS ANTIBODY [None]
  - ERYTHEMA MULTIFORME [None]
  - MONONUCLEOSIS SYNDROME [None]
  - PURPURA [None]
  - PYREXIA [None]
  - RASH MACULAR [None]
  - RASH MACULO-PAPULAR [None]
  - SKIN LESION [None]
